FAERS Safety Report 8017566-5 (Version None)
Quarter: 2012Q1

REPORT INFORMATION
  Report Type: 
  Country: None (occurrence: None)
  Receive Date: 20120103
  Receipt Date: 20111220
  Transmission Date: 20120608
  Serious: Yes (Hospitalization)
  Sender: FDA-Public Use
  Company Number: PT-RANBAXY-2011RR-51517

PATIENT
  Age: 75 Year
  Sex: Male

DRUGS (7)
  1. FLUCONAZOLE [Suspect]
     Indication: OESOPHAGEAL CANDIDIASIS
     Route: 048
  2. GLICLAZIDE [Concomitant]
     Indication: TYPE 2 DIABETES MELLITUS
     Route: 065
  3. GABAPENTIN [Suspect]
     Indication: HERPES ZOSTER
     Route: 065
  4. INDAPAMIDE [Concomitant]
     Indication: ESSENTIAL HYPERTENSION
     Route: 065
  5. VALACYCLOVIR [Suspect]
     Indication: HERPES ZOSTER
     Dosage: UNK
     Route: 065
  6. OMEPRAZOLE [Suspect]
     Indication: DUODENAL ULCER
     Route: 065
  7. FOSINOPRIL SODIUM [Concomitant]
     Indication: ESSENTIAL HYPERTENSION
     Route: 065

REACTIONS (4)
  - DIARRHOEA [None]
  - PSEUDOMEMBRANOUS COLITIS [None]
  - CHOLESTASIS [None]
  - OESOPHAGEAL CANDIDIASIS [None]
